FAERS Safety Report 8235857 (Version 5)
Quarter: 2013Q2

REPORT INFORMATION
  Report Type: Report from Study
  Country: US (occurrence: US)
  Receive Date: 20111108
  Receipt Date: 20130613
  Transmission Date: 20140414
  Serious: Yes (Hospitalization, Disabling, Congenital Anomaly)
  Sender: FDA-Public Use
  Company Number: US-ROCHE-GNE321609

PATIENT
  Age: 0 Year
  Sex: Male
  Weight: 3.63 kg

DRUGS (7)
  1. OMALIZUMAB [Suspect]
     Indication: ASTHMA
     Dosage: LAST DOSE PRIOR TO SAE 27 APR 2011
     Route: 064
     Dates: start: 20090114
  2. OMALIZUMAB [Suspect]
     Route: 063
  3. RANITIDINE [Concomitant]
     Indication: GASTROOESOPHAGEAL REFLUX DISEASE
     Route: 048
  4. PREVACID [Concomitant]
     Indication: GASTROOESOPHAGEAL REFLUX DISEASE
     Route: 048
  5. PREVACID [Concomitant]
     Indication: GASTROOESOPHAGEAL REFLUX DISEASE
  6. ADVAIR [Concomitant]
     Indication: PRODUCT USED FOR UNKNOWN INDICATION
  7. AMOXICILLIN [Concomitant]
     Indication: EAR INFECTION

REACTIONS (12)
  - Acrochordon [Not Recovered/Not Resolved]
  - Umbilical hernia [Not Recovered/Not Resolved]
  - Bronchiolitis [Unknown]
  - Otitis media [Unknown]
  - Otitis media [Unknown]
  - Respiratory tract infection viral [Unknown]
  - Ear infection [Unknown]
  - Visual field defect [Unknown]
  - Maternal exposure timing unspecified [Unknown]
  - Exposure during breast feeding [Unknown]
  - Premature baby [Unknown]
  - Staphylococcal infection [Not Recovered/Not Resolved]
